FAERS Safety Report 9377994 (Version 1)
Quarter: 2013Q2

REPORT INFORMATION
  Report Type: Spontaneous
  Country: BR (occurrence: None)
  Receive Date: 20130625
  Receipt Date: 20130625
  Transmission Date: 20140414
  Serious: Yes (Other)
  Sender: FDA-Public Use
  Company Number: BR-1198883

PATIENT
  Age: 84 Year
  Sex: Female
  Weight: 54 kg

DRUGS (2)
  1. TRAVATAN 0.004 % OPHTHALMIC SOLUTION (TRAVATAN 0.004%) [Suspect]
     Indication: GLAUCOMA
     Route: 047
     Dates: start: 1998, end: 201212
  2. LACRIFILM [Concomitant]

REACTIONS (5)
  - Diabetes mellitus [None]
  - Neoplasm malignant [None]
  - Cataract [None]
  - Cardiac pacemaker insertion [None]
  - Muscular weakness [None]
